FAERS Safety Report 23154774 (Version 1)
Quarter: 2023Q4

REPORT INFORMATION
  Report Type: Spontaneous
  Country: None (occurrence: IE)
  Receive Date: 20231107
  Receipt Date: 20231107
  Transmission Date: 20240110
  Serious: Yes (Other)
  Sender: FDA-Public Use
  Company Number: IE-Ascend Therapeutics US, LLC-2147786

PATIENT
  Sex: Female

DRUGS (2)
  1. ESTROGEL [Suspect]
     Active Substance: ESTRADIOL
     Indication: Product used for unknown indication
     Route: 065
  2. ESTRADIOL HEMIHYDRATE [Suspect]
     Active Substance: ESTRADIOL HEMIHYDRATE
     Route: 065

REACTIONS (11)
  - Suicidal ideation [Unknown]
  - Depression [Unknown]
  - Drug ineffective [Unknown]
  - Dry eye [Unknown]
  - Irritability [Unknown]
  - Dry skin [Unknown]
  - Vulvovaginal dryness [Unknown]
  - Apathy [Unknown]
  - Fatigue [Unknown]
  - Breast tenderness [Unknown]
  - Product quality issue [Unknown]
